FAERS Safety Report 5205326-X (Version None)
Quarter: 2007Q1

REPORT INFORMATION
  Report Type: 
  Country: None (occurrence: None)
  Receive Date: 20070108
  Receipt Date: 20061221
  Transmission Date: 20070707
  Serious: Yes (Death)
  Sender: FDA-Public Use
  Company Number: 8018989

PATIENT
  Age: 36 Year
  Sex: Male
  Weight: 90 kg

DRUGS (3)
  1. KEPPRA [Suspect]
     Indication: EPILEPSY
     Dosage: 1650 MG 2/D PO
     Route: 048
     Dates: start: 20031126, end: 20060826
  2. CARBAMAZEPINE [Concomitant]
  3. CLOBAZAM [Concomitant]

REACTIONS (3)
  - COMPLEX PARTIAL SEIZURES [None]
  - DROWNING [None]
  - ROAD TRAFFIC ACCIDENT [None]
